FAERS Safety Report 5033768-4 (Version None)
Quarter: 2006Q2

REPORT INFORMATION
  Report Type: 
  Country: None (occurrence: None)
  Receive Date: 20060623
  Receipt Date: 20060609
  Transmission Date: 20061013
  Serious: Yes (Other)
  Sender: FDA-Public Use
  Company Number: PHHO2006IT09610

PATIENT
  Age: 64 Year
  Sex: Male
  Weight: 70 kg

DRUGS (5)
  1. ZOLEDRONATE [Suspect]
     Indication: METASTASES TO BONE
     Dosage: 4MG EVERY 3 MONTHS
     Route: 042
     Dates: start: 20060222
  2. CALCIUM GLUCONATE [Concomitant]
     Indication: METASTASES TO BONE
  3. VITAMIN D [Concomitant]
     Indication: METASTASES TO BONE
  4. CASODEX [Concomitant]
     Indication: ANDROGEN DEFICIENCY
  5. TRIPTORELIN [Concomitant]
     Indication: ANDROGEN DEFICIENCY

REACTIONS (4)
  - BACK PAIN [None]
  - BODY TEMPERATURE INCREASED [None]
  - CHEST PAIN [None]
  - ELECTROCARDIOGRAM T WAVE INVERSION [None]
